FAERS Safety Report 5723612-1 (Version None)
Quarter: 2008Q2

REPORT INFORMATION
  Report Type: 
  Country: None (occurrence: None)
  Receive Date: 20080430
  Receipt Date: 20080428
  Transmission Date: 20081010
  Serious: Yes (Life-Threatening, Hospitalization)
  Sender: FDA-Public Use
  Company Number: NO-BRISTOL-MYERS SQUIBB COMPANY-14169239

PATIENT
  Age: 38 Year
  Sex: Female

DRUGS (3)
  1. KENACORT [Suspect]
     Indication: BURSITIS
     Dosage: 80MG ON 22-APR-08
     Dates: start: 20080421
  2. YASMIN [Concomitant]
     Indication: CONTRACEPTION
  3. ZOLOFT [Concomitant]
     Indication: DEPRESSION
     Dates: start: 20040101

REACTIONS (1)
  - SUICIDE ATTEMPT [None]
